FAERS Safety Report 5903523-9 (Version None)
Quarter: 2008Q3

REPORT INFORMATION
  Report Type: 
  Country: None (occurrence: None)
  Receive Date: 20080919
  Receipt Date: 20080820
  Transmission Date: 20090109
  Serious: No
  Sender: FDA-Public Use
  Company Number: US-WYE-H05658508

PATIENT
  Age: 47 Year
  Sex: Female

DRUGS (2)
  1. PRISTIQ [Suspect]
     Indication: DEPRESSION
     Dosage: 50 MG 1X PER 1 DAY, ORAL
     Route: 048
     Dates: start: 20080818, end: 20080818
  2. ATIVAN [Concomitant]

REACTIONS (5)
  - DYSGEUSIA [None]
  - EYE IRRITATION [None]
  - HYPOACUSIS [None]
  - PAROSMIA [None]
  - THROAT IRRITATION [None]
